FAERS Safety Report 8928388 (Version 1)
Quarter: 2012Q4

REPORT INFORMATION
  Report Type: 
  Country: DE (occurrence: DE)
  Receive Date: 20121128
  Receipt Date: 20121128
  Transmission Date: 20130627
  Serious: Yes (Other)
  Sender: FDA-Public Use
  Company Number: PHHY2012DE106961

PATIENT
  Age: 87 Year
  Sex: Male

DRUGS (1)
  1. CO-DIOVAN [Suspect]
     Dosage: 0.5 DF(160 mg vals/ 12.5 mg hydr), QD
     Route: 048

REACTIONS (3)
  - Circulatory collapse [Unknown]
  - Platelet count decreased [Unknown]
  - Wrong technique in drug usage process [Unknown]
